FAERS Safety Report 24828106 (Version 1)
Quarter: 2025Q1

REPORT INFORMATION
  Report Type: Spontaneous
  Country: US (occurrence: US)
  Receive Date: 20250109
  Receipt Date: 20250109
  Transmission Date: 20250408
  Serious: Yes (Other)
  Sender: PRINSTON PHARMACEUTICAL
  Company Number: US-PRINSTON PHARMACEUTICAL INC.-2025PRN00002

PATIENT
  Age: 81 Year
  Sex: Female

DRUGS (1)
  1. CAPTOPRIL [Suspect]
     Active Substance: CAPTOPRIL
     Indication: Hypertension

REACTIONS (2)
  - Loss of consciousness [Unknown]
  - Drug ineffective [Unknown]
